FAERS Safety Report 9213438 (Version 1)
Quarter: 2013Q2

REPORT INFORMATION
  Report Type: Spontaneous
  Country: CH (occurrence: CH)
  Receive Date: 20130405
  Receipt Date: 20130405
  Transmission Date: 20140414
  Serious: Yes (Hospitalization)
  Sender: FDA-Public Use
  Company Number: CH-MYLANLABS-2013S1006850

PATIENT
  Age: 32 Year
  Sex: Female

DRUGS (3)
  1. ABACAVIR [Suspect]
     Indication: HIV INFECTION
     Route: 065
  2. LOPINAVIR [Suspect]
     Indication: HIV INFECTION
     Route: 065
  3. TENOFOVIR [Suspect]
     Indication: HIV INFECTION
     Route: 065

REACTIONS (3)
  - Intracranial pressure increased [Recovered/Resolved]
  - Encephalitis [Recovered/Resolved]
  - Abdominal discomfort [Unknown]
